FAERS Safety Report 19608107 (Version 1)
Quarter: 2021Q3

REPORT INFORMATION
  Report Type: Spontaneous
  Country: ES (occurrence: ES)
  Receive Date: 20210726
  Receipt Date: 20210726
  Transmission Date: 20211014
  Serious: Yes (Hospitalization)
  Sender: FDA-Public Use
  Company Number: ES-TEVA-2021-ES-1934939

PATIENT
  Age: 85 Year
  Sex: Female

DRUGS (3)
  1. ENALAPRIL 5 MG COMPRIMIDO [Suspect]
     Active Substance: ENALAPRIL
     Indication: CARDIAC FAILURE CONGESTIVE
     Dosage: 0?0.5?0, 5MG
     Route: 048
     Dates: start: 20170103, end: 20210706
  2. FUROSEMIDA CINFA 40 MG COMPRIMIDOS EFG, 10 COMPRIMIDOS [Suspect]
     Active Substance: FUROSEMIDE
     Indication: CARDIAC FAILURE CONGESTIVE
     Dosage: 1?0.5?0, 60MG
     Route: 048
     Dates: start: 20170127
  3. ATENOLOL (356A) [Suspect]
     Active Substance: ATENOLOL
     Indication: ATRIAL FIBRILLATION
     Route: 048
     Dates: start: 20140422, end: 20210706

REACTIONS (2)
  - Sinus bradycardia [Recovering/Resolving]
  - Hypotension [Recovering/Resolving]

NARRATIVE: CASE EVENT DATE: 20210706
